FAERS Safety Report 8536479-3 (Version None)
Quarter: 2012Q3

REPORT INFORMATION
  Report Type: 
  Country: None (occurrence: None)
  Receive Date: 20120725
  Receipt Date: 20120720
  Transmission Date: 20120928
  Serious: Yes (Other)
  Sender: FDA-Public Use
  Company Number: PHHY2012BR054127

PATIENT
  Sex: Female

DRUGS (5)
  1. TRILEPTAL [Suspect]
     Indication: NEURALGIA
     Dosage: 2 DF, UNK
     Route: 048
  2. AMITRIPTYLINE HYDROCHLORIDE [Concomitant]
     Indication: PAIN
     Dosage: 2 DF, DAILY
     Route: 048
  3. LYRICA [Concomitant]
     Indication: PAIN
     Dosage: 2 DF, DAILY
     Route: 048
  4. CITONEURON [Concomitant]
     Indication: NEUROPATHY PERIPHERAL
     Dosage: 1 DF (1 AMPOULE PER MONTH)
     Route: 030
  5. SINAXIAL [Concomitant]
     Indication: NEUROPATHY PERIPHERAL
     Dosage: 5 DF (5 AMPOULES EVERY 6 MONTHS)
     Route: 030

REACTIONS (6)
  - POLYNEUROPATHY [None]
  - MUSCULAR WEAKNESS [None]
  - CONDITION AGGRAVATED [None]
  - PAIN IN EXTREMITY [None]
  - CHOLELITHIASIS [None]
  - POST PROCEDURAL COMPLICATION [None]
